FAERS Safety Report 11936226 (Version 2)
Quarter: 2016Q3

REPORT INFORMATION
  Report Type: Report from Study
  Country: US (occurrence: US)
  Receive Date: 20160121
  Receipt Date: 20160726
  Transmission Date: 20161109
  Serious: No
  Sender: FDA-Public Use
  Company Number: US-AMGEN-USASL2016003614

PATIENT
  Age: 66 Year
  Sex: Male

DRUGS (3)
  1. KYPROLIS [Suspect]
     Active Substance: CARFILZOMIB
     Indication: PLASMA CELL MYELOMA
     Dosage: UNK
     Route: 065
     Dates: start: 201512
  2. POMALYST [Concomitant]
     Active Substance: POMALIDOMIDE
     Dosage: 2 MG, UNK AT NIGHT
  3. ZOMETA [Concomitant]
     Active Substance: ZOLEDRONIC ACID

REACTIONS (9)
  - Condition aggravated [Unknown]
  - Drug effect incomplete [Unknown]
  - Nervousness [Unknown]
  - Gait disturbance [Unknown]
  - Arthralgia [Recovering/Resolving]
  - White blood cell count decreased [Unknown]
  - Groin pain [Recovering/Resolving]
  - Bone pain [Unknown]
  - Insomnia [Unknown]

NARRATIVE: CASE EVENT DATE: 20160402
